FAERS Safety Report 4377618-8 (Version None)
Quarter: 2004Q2

REPORT INFORMATION
  Report Type: 
  Country: None (occurrence: None)
  Receive Date: 20040615
  Receipt Date: 20040602
  Transmission Date: 20050107
  Serious: Yes (Life-Threatening, Hospitalization)
  Sender: FDA-Public Use
  Company Number: 20010830002

PATIENT
  Age: 43 Year
  Sex: Male

DRUGS (3)
  1. COMBIVIR [Suspect]
     Indication: HIV INFECTION
     Route: 048
     Dates: start: 20001106, end: 20010115
  2. DPC 083 [Suspect]
     Indication: HIV INFECTION
     Dosage: 50MG PER DAY
     Route: 048
     Dates: start: 20001106, end: 20010115
  3. ZALEPLON [Suspect]
     Indication: INSOMNIA
     Dosage: 840MG PER DAY
     Route: 048
     Dates: start: 20010116, end: 20010116

REACTIONS (4)
  - ACUTE STRESS DISORDER [None]
  - DEPRESSION [None]
  - OVERDOSE [None]
  - SUICIDE ATTEMPT [None]
